FAERS Safety Report 14381921 (Version 1)
Quarter: 2018Q1

REPORT INFORMATION
  Report Type: Spontaneous
  Country: US (occurrence: US)
  Receive Date: 20180111
  Receipt Date: 20180111
  Transmission Date: 20180509
  Serious: Yes (Other)
  Sender: FDA-Public Use
  Company Number: None

PATIENT
  Age: 40 Year
  Sex: Female
  Weight: 54.27 kg

DRUGS (2)
  1. CEFAZOLIN [Concomitant]
     Active Substance: CEFAZOLIN
  2. NAFCILLIN [Suspect]
     Active Substance: NAFCILLIN\NAFCILLIN SODIUM
     Indication: STAPHYLOCOCCAL INFECTION
     Route: 041
     Dates: start: 20171116, end: 20180103

REACTIONS (8)
  - Generalised erythema [None]
  - Swelling face [None]
  - Feeling hot [None]
  - Pruritus generalised [None]
  - Eye swelling [None]
  - Erythema [None]
  - Flushing [None]
  - Urticaria [None]

NARRATIVE: CASE EVENT DATE: 20180103
